FAERS Safety Report 20100410 (Version 2)
Quarter: 2021Q4

REPORT INFORMATION
  Report Type: Spontaneous
  Country: IT (occurrence: IT)
  Receive Date: 20211123
  Receipt Date: 20211209
  Transmission Date: 20220303
  Serious: Yes (Other)
  Sender: FDA-Public Use
  Company Number: IT-LUPIN PHARMACEUTICALS INC.-2021-22407

PATIENT
  Sex: Male
  Weight: 2.4 kg

DRUGS (6)
  1. MORPHINE [Suspect]
     Active Substance: MORPHINE
     Indication: Anaesthesia
     Dosage: 100 MICROGRAM (SPINAL)
     Route: 064
  2. PRAMIPEXOLE [Suspect]
     Active Substance: PRAMIPEXOLE
     Indication: Aromatic L-amino acid decarboxylase deficiency
     Dosage: 0.26 MILLIGRAM, QD
     Route: 064
  3. SELEGILINE [Suspect]
     Active Substance: SELEGILINE
     Indication: Aromatic L-amino acid decarboxylase deficiency
     Dosage: 5 MILLIGRAM, QD
     Route: 064
  4. PYRIDOXAL PHOSPHATE ANHYDROUS [Suspect]
     Active Substance: PYRIDOXAL PHOSPHATE ANHYDROUS
     Indication: Aromatic L-amino acid decarboxylase deficiency
     Dosage: 50 MILLIGRAM, QD
     Route: 064
  5. PYRIDOXAL PHOSPHATE ANHYDROUS [Suspect]
     Active Substance: PYRIDOXAL PHOSPHATE ANHYDROUS
     Dosage: 100 MILLIGRAM, QD
     Route: 064
  6. LEVOBUPIVACAINE HYDROCHLORIDE [Suspect]
     Active Substance: LEVOBUPIVACAINE HYDROCHLORIDE
     Indication: Anaesthesia
     Dosage: 12 MILLIGRAM (SPINAL)
     Route: 064

REACTIONS (3)
  - Small for dates baby [Unknown]
  - Low birth weight baby [Unknown]
  - Foetal exposure during pregnancy [Unknown]
